FAERS Safety Report 18273043 (Version 1)
Quarter: 2020Q3

REPORT INFORMATION
  Report Type: Spontaneous
  Country: US (occurrence: US)
  Receive Date: 20200916
  Receipt Date: 20200916
  Transmission Date: 20201103
  Serious: No
  Sender: FDA-Public Use
  Company Number: None

PATIENT
  Age: 51 Year
  Sex: Male
  Weight: 82.5 kg

DRUGS (3)
  1. DEXAMETHASONE 6MG DAILY [Concomitant]
  2. OLANZAPINE 2.5MG Q12H [Concomitant]
  3. REMDESIVIR. [Suspect]
     Active Substance: REMDESIVIR
     Indication: COVID-19
     Route: 042
     Dates: start: 20200913, end: 20200915

REACTIONS (1)
  - Alanine aminotransferase increased [None]

NARRATIVE: CASE EVENT DATE: 20200916
